FAERS Safety Report 11230267 (Version 2)
Quarter: 2015Q3

REPORT INFORMATION
  Report Type: Spontaneous
  Country: BG (occurrence: BG)
  Receive Date: 20150701
  Receipt Date: 20150723
  Transmission Date: 20151125
  Serious: Yes (Life-Threatening, Hospitalization)
  Sender: FDA-Public Use
  Company Number: BG-ASTRAZENECA-2015SE62477

PATIENT
  Age: 52 Year
  Sex: Male

DRUGS (3)
  1. BETA BLOCKERS [Concomitant]
  2. BRILIQUE [Suspect]
     Active Substance: TICAGRELOR
     Indication: ACUTE CORONARY SYNDROME
     Route: 048
     Dates: start: 201412
  3. ANTIDIABETIC MEDICATION [Concomitant]
     Active Substance: UNSPECIFIED INGREDIENT
     Indication: DIABETES MELLITUS

REACTIONS (2)
  - Aortic thrombosis [Unknown]
  - Ischaemic stroke [Recovered/Resolved with Sequelae]
